FAERS Safety Report 8377020-8 (Version None)
Quarter: 2012Q2

REPORT INFORMATION
  Report Type: 
  Country: None (occurrence: None)
  Receive Date: 20120521
  Receipt Date: 20120511
  Transmission Date: 20120825
  Serious: Yes (Hospitalization)
  Sender: FDA-Public Use
  Company Number: 2012POI057300025

PATIENT

DRUGS (1)
  1. VENLAFAXINE [Suspect]
     Indication: DEPRESSION
     Dosage: PER ORAL
     Route: 048
     Dates: start: 20110101

REACTIONS (5)
  - DRUG EFFECT DECREASED [None]
  - DEPRESSION [None]
  - MEDICATION RESIDUE [None]
  - PRODUCT SUBSTITUTION ISSUE [None]
  - FEELING ABNORMAL [None]
